FAERS Safety Report 19730274 (Version 1)
Quarter: 2021Q3

REPORT INFORMATION
  Report Type: Spontaneous
  Country: US (occurrence: US)
  Receive Date: 20210821
  Receipt Date: 20210821
  Transmission Date: 20211014
  Serious: Yes (Other)
  Sender: FDA-Public Use
  Company Number: US-AUROBINDO-AUR-APL-2021-034986

PATIENT
  Age: 63 Year
  Sex: Male

DRUGS (11)
  1. GEMCITABINE. [Suspect]
     Active Substance: GEMCITABINE
     Indication: MYXOFIBROSARCOMA
     Dosage: UNK (2 CYCLES)
     Route: 065
  2. TRABECTEDIN [Suspect]
     Active Substance: TRABECTEDIN
     Indication: MYXOFIBROSARCOMA
     Dosage: UNK (2 CYCLES)
     Route: 065
  3. TEMOZOLOMIDE. [Suspect]
     Active Substance: TEMOZOLOMIDE
     Indication: MYXOFIBROSARCOMA
     Dosage: 150 MILLIGRAM/SQ. METER (2 CYCLES) (8 CYCLES)
     Route: 065
  4. PAZOPANIB [Suspect]
     Active Substance: PAZOPANIB
     Indication: MYXOFIBROSARCOMA
     Dosage: UNK (7 CYCLES)
     Route: 065
  5. ATEZOLIZUMAB. [Suspect]
     Active Substance: ATEZOLIZUMAB
     Indication: PRODUCT USED FOR UNKNOWN INDICATION
     Dosage: UNK
     Route: 065
  6. OLARATUMAB [Suspect]
     Active Substance: OLARATUMAB
     Indication: MYXOFIBROSARCOMA
     Dosage: UNK
     Route: 065
  7. PACLITAXEL. [Suspect]
     Active Substance: PACLITAXEL
     Indication: MYXOFIBROSARCOMA
     Dosage: UNK (2 CYCLES)
     Route: 065
  8. DOCETAXEL. [Suspect]
     Active Substance: DOCETAXEL
     Indication: MYXOFIBROSARCOMA
     Dosage: UNK (2 CYCLES)
     Route: 065
  9. DOXORUBICIN [Suspect]
     Active Substance: DOXORUBICIN
     Indication: MYXOFIBROSARCOMA
     Dosage: UNK (2 CYCLES)
     Route: 065
  10. ALDOXORUBICIN [Suspect]
     Active Substance: DOXORUBICIN
     Indication: MYXOFIBROSARCOMA
     Dosage: UNK (2 CYCLES)
     Route: 065
  11. TOPOTECAN [Suspect]
     Active Substance: TOPOTECAN HYDROCHLORIDE
     Indication: MYXOFIBROSARCOMA
     Dosage: UNK (7 CYCLES)
     Route: 065

REACTIONS (1)
  - Drug ineffective [Unknown]
